FAERS Safety Report 17059333 (Version 1)
Quarter: 2019Q4

REPORT INFORMATION
  Report Type: Spontaneous
  Country: US (occurrence: US)
  Receive Date: 20191121
  Receipt Date: 20191121
  Transmission Date: 20200122
  Serious: Yes (Hospitalization)
  Sender: FDA-Public Use
  Company Number: US-BAYER-2019-206712

PATIENT
  Age: 27 Year
  Sex: Female

DRUGS (1)
  1. GADAVIST [Suspect]
     Active Substance: GADOBUTROL
     Indication: SEIZURE
     Dosage: 8 MG, ONCE
     Route: 042
     Dates: start: 20191114

REACTIONS (3)
  - Dyspnoea [None]
  - Burning sensation [None]
  - Chest pain [None]

NARRATIVE: CASE EVENT DATE: 20191114
